FAERS Safety Report 10248583 (Version 1)
Quarter: 2014Q2

REPORT INFORMATION
  Report Type: Spontaneous
  Country: US (occurrence: US)
  Receive Date: 20140620
  Receipt Date: 20140620
  Transmission Date: 20141212
  Serious: Yes (Other)
  Sender: FDA-Public Use
  Company Number: US-AMGEN-USASP2014045824

PATIENT
  Age: 54 Year
  Sex: Female
  Weight: 90.25 kg

DRUGS (15)
  1. ENBREL [Suspect]
     Indication: PRODUCT USED FOR UNKNOWN INDICATION
     Dosage: 50 MG, QWK
     Route: 058
  2. PANTOPRAZOLE [Concomitant]
     Dosage: 20 MG, UNK
  3. PREDNISONE [Concomitant]
     Dosage: 10 MG, UNK
  4. AMLODIPINE [Concomitant]
     Dosage: 2.5 MG, UNK
  5. MELOXICAM [Concomitant]
     Dosage: 15 MG, UNK
  6. METHOTREXATE [Concomitant]
     Dosage: 2.5 MG, UNK
  7. ACYCLOVIR                          /00587301/ [Concomitant]
     Dosage: 200 MG, UNK
  8. PROPRANOLOL [Concomitant]
     Dosage: 20 MG, UNK
  9. HYDROCHLOROTH [Concomitant]
     Dosage: 12.5 MG, UNK
  10. ESTRADIOL [Concomitant]
     Dosage: 0.5 MG, UNK
  11. OXYCODONE [Concomitant]
     Dosage: 10 MG, UNK
  12. FISH OIL [Concomitant]
     Dosage: UNK
  13. FLEXERIL                           /00428402/ [Concomitant]
     Dosage: 5 MG, UNK
  14. ZINC [Concomitant]
     Dosage: 30 MG, UNK
  15. FOLIC ACID [Concomitant]
     Dosage: UNK

REACTIONS (4)
  - Pharyngeal oedema [Unknown]
  - Swollen tongue [Unknown]
  - Blood pressure increased [Unknown]
  - Vaginal disorder [Unknown]
